FAERS Safety Report 5097904-6 (Version None)
Quarter: 2006Q3

REPORT INFORMATION
  Report Type: 
  Country: None (occurrence: None)
  Receive Date: 20060905
  Receipt Date: 20060905
  Transmission Date: 20061208
  Serious: Yes (Hospitalization)
  Sender: FDA-Public Use
  Company Number: None

PATIENT
  Sex: Female
  Weight: 63.05 kg

DRUGS (1)
  1. LYRICA [Suspect]
     Indication: NEUROPATHY PERIPHERAL
     Dates: start: 20060329, end: 20060418

REACTIONS (7)
  - ARTHRALGIA [None]
  - BONE PAIN [None]
  - MOVEMENT DISORDER [None]
  - MUSCULOSKELETAL DISCOMFORT [None]
  - MYALGIA [None]
  - PAIN [None]
  - TENDERNESS [None]
